FAERS Safety Report 26086108 (Version 1)
Quarter: 2025Q4

REPORT INFORMATION
  Report Type: Spontaneous
  Country: US (occurrence: US)
  Receive Date: 20251125
  Receipt Date: 20251125
  Transmission Date: 20260117
  Serious: Yes (Death, Life-Threatening, Hospitalization, Other)
  Sender: STRIDES
  Company Number: US-STRIDES ARCOLAB LIMITED-2025SP014507

PATIENT
  Age: 45 Year
  Sex: Female

DRUGS (1)
  1. POTASSIUM CHLORIDE [Suspect]
     Active Substance: POTASSIUM CHLORIDE
     Indication: Product used for unknown indication
     Dosage: POWDER, CORRESPONDING TO AN ESTIMATED 5000 INDIVIDUAL SERVINGS AND 525 GRAMS OF ELEMENTAL POTASSIUM
     Route: 065

REACTIONS (13)
  - Cardiac arrest [Fatal]
  - Toxicity to various agents [Fatal]
  - Acute myocardial infarction [Unknown]
  - Dyspnoea [Unknown]
  - Sinus bradycardia [Unknown]
  - Pulseless electrical activity [Unknown]
  - Metabolic acidosis [Unknown]
  - Hyperkalaemia [Fatal]
  - Vomiting [Unknown]
  - Abdominal pain [Unknown]
  - Nausea [Unknown]
  - Intentional product misuse [Unknown]
  - Intentional overdose [Unknown]
